FAERS Safety Report 11617756 (Version 1)
Quarter: 2015Q4

REPORT INFORMATION
  Report Type: Spontaneous
  Country: PK (occurrence: PK)
  Receive Date: 20151009
  Receipt Date: 20151009
  Transmission Date: 20160304
  Serious: Yes (Hospitalization)
  Sender: FDA-Public Use
  Company Number: PK-SA-2015SA153080

PATIENT
  Sex: Male

DRUGS (11)
  1. COAPROVEL [Suspect]
     Active Substance: HYDROCHLOROTHIAZIDE\IRBESARTAN
     Indication: HYPERTENSION
     Route: 048
     Dates: end: 201509
  2. EXFORGE [Concomitant]
     Active Substance: AMLODIPINE BESYLATE\VALSARTAN
     Indication: HYPERTENSION
  3. EXFORGE [Concomitant]
     Active Substance: AMLODIPINE BESYLATE\VALSARTAN
     Indication: SUPRAVENTRICULAR TACHYCARDIA
  4. ALDACTONE [Concomitant]
     Active Substance: SPIRONOLACTONE
     Indication: HYPERTENSION
     Route: 048
     Dates: end: 201509
  5. CALAN - SLOW RELEASE [Concomitant]
     Indication: SUPRAVENTRICULAR TACHYCARDIA
  6. CALAN - SLOW RELEASE [Concomitant]
     Indication: SUPRAVENTRICULAR TACHYCARDIA
  7. CALAN - SLOW RELEASE [Concomitant]
     Indication: HYPERTENSION
  8. EXFORGE [Concomitant]
     Active Substance: AMLODIPINE BESYLATE\VALSARTAN
     Indication: HYPERTENSION
  9. APROVEL [Suspect]
     Active Substance: IRBESARTAN
     Indication: HYPERTENSION
     Route: 048
     Dates: end: 201509
  10. EXFORGE [Concomitant]
     Active Substance: AMLODIPINE BESYLATE\VALSARTAN
     Indication: SUPRAVENTRICULAR TACHYCARDIA
  11. CALAN - SLOW RELEASE [Concomitant]
     Indication: HYPERTENSION

REACTIONS (10)
  - Electrocardiogram abnormal [Unknown]
  - Hyperhidrosis [Unknown]
  - Electrolyte imbalance [Recovering/Resolving]
  - Dizziness [Unknown]
  - Faecal incontinence [Unknown]
  - Blood creatinine increased [Recovered/Resolved]
  - Hypertension [Recovered/Resolved]
  - Tremor [Unknown]
  - Drug ineffective [Unknown]
  - Back pain [Unknown]
